FAERS Safety Report 5665269-4 (Version None)
Quarter: 2008Q1

REPORT INFORMATION
  Report Type: 
  Country: None (occurrence: None)
  Receive Date: 20080314
  Receipt Date: 20080201
  Transmission Date: 20080703
  Serious: No
  Sender: FDA-Public Use
  Company Number: US-ABBOTT-07P-163-0375657-00

PATIENT
  Sex: Female
  Weight: 81.72 kg

DRUGS (5)
  1. HUMIRA [Suspect]
     Indication: RHEUMATOID ARTHRITIS
     Route: 058
     Dates: start: 20070401, end: 20070701
  2. HUMIRA [Suspect]
     Dosage: HUMIRA PRE-FILLED SYRINGE
     Route: 058
     Dates: start: 20060801, end: 20070401
  3. LISINOPRIL [Concomitant]
     Indication: HYPERTENSION
     Route: 048
  4. SALBUTAMOL SULFATE [Concomitant]
     Indication: HYPERSENSITIVITY
     Route: 055
  5. PREDNISONE TAB [Concomitant]
     Indication: RHEUMATOID ARTHRITIS
     Route: 048

REACTIONS (1)
  - DERMATITIS [None]
